FAERS Safety Report 22261706 (Version 1)
Quarter: 2023Q2

REPORT INFORMATION
  Report Type: Spontaneous
  Country: GB (occurrence: GB)
  Receive Date: 20230428
  Receipt Date: 20230428
  Transmission Date: 20230722
  Serious: Yes (Other)
  Sender: FDA-Public Use
  Company Number: GB-HALEON-GBCH2023HLN018555

PATIENT

DRUGS (1)
  1. SCOPOLAMINE HYDROBROMIDE [Suspect]
     Active Substance: SCOPOLAMINE HYDROBROMIDE
     Indication: Saliva altered
     Dosage: 1 MG (72 HOURS AT A TIME)

REACTIONS (3)
  - Ophthalmic migraine [Unknown]
  - Withdrawal syndrome [Unknown]
  - Off label use [Unknown]
